FAERS Safety Report 6057422-5 (Version None)
Quarter: 2009Q1

REPORT INFORMATION
  Report Type: 
  Country: None (occurrence: None)
  Receive Date: 20090126
  Receipt Date: 20090126
  Transmission Date: 20090719
  Serious: Yes (Other)
  Sender: FDA-Public Use
  Company Number: None

PATIENT
  Age: 53 Year
  Sex: Male
  Weight: 80.7403 kg

DRUGS (1)
  1. POLYSPORIN [Suspect]
     Indication: WOUND
     Dosage: POWDER TWICE DAILY TOP
     Route: 061
     Dates: start: 20080910, end: 20080915

REACTIONS (3)
  - RASH ERYTHEMATOUS [None]
  - RASH PAPULAR [None]
  - RASH PRURITIC [None]
